FAERS Safety Report 5246521-3 (Version None)
Quarter: 2007Q1

REPORT INFORMATION
  Report Type: 
  Country: None (occurrence: None)
  Receive Date: 20070226
  Receipt Date: 20061207
  Transmission Date: 20070707
  Serious: No
  Sender: FDA-Public Use
  Company Number: US06-015450

PATIENT
  Sex: Female

DRUGS (1)
  1. ALKERAN [Suspect]
     Route: 065

REACTIONS (5)
  - DYSPNOEA [None]
  - EYELID OEDEMA [None]
  - PHARMACEUTICAL PRODUCT COMPLAINT [None]
  - RASH [None]
  - SWOLLEN TONGUE [None]
